FAERS Safety Report 4404262-6 (Version None)
Quarter: 2004Q3

REPORT INFORMATION
  Report Type: 
  Country: None (occurrence: None)
  Receive Date: 20040722
  Receipt Date: 20040413
  Transmission Date: 20050211
  Serious: Yes (Other)
  Sender: FDA-Public Use
  Company Number: FR-BRISTOL-MYERS SQUIBB COMPANY-12579504

PATIENT
  Age: 34 Year
  Sex: Female
  Weight: 60 kg

DRUGS (2)
  1. SUSTIVA [Suspect]
     Indication: HIV INFECTION
     Route: 048
     Dates: start: 20000101, end: 20040510
  2. COMBIVIR [Concomitant]
     Dosage: LAMIVUDINE 150 MG + ZIDOVUDINE 300 MG.
     Dates: start: 20000101, end: 20040510

REACTIONS (3)
  - ABORTION INDUCED [None]
  - INTRA-UTERINE DEATH [None]
  - PREGNANCY [None]
